FAERS Safety Report 5590914-1 (Version None)
Quarter: 2008Q1

REPORT INFORMATION
  Report Type: 
  Country: None (occurrence: None)
  Receive Date: 20080115
  Receipt Date: 20071206
  Transmission Date: 20080703
  Serious: Yes (Other)
  Sender: FDA-Public Use
  Company Number: US-BAYER-200715843NA

PATIENT
  Age: 25 Year
  Sex: Female
  Weight: 59 kg

DRUGS (2)
  1. YAZ [Suspect]
     Indication: CONTRACEPTION
     Dosage: TOTAL DAILY DOSE: 1 DF
     Dates: start: 20070601
  2. HYDROCODONE [Concomitant]
     Indication: PAIN
     Dates: start: 20071202

REACTIONS (4)
  - INCORRECT DOSE ADMINISTERED [None]
  - PELVIC FRACTURE [None]
  - POLYMENORRHOEA [None]
  - ROAD TRAFFIC ACCIDENT [None]
